FAERS Safety Report 5582503-X (Version None)
Quarter: 2007Q4

REPORT INFORMATION
  Report Type: 
  Country: None (occurrence: None)
  Receive Date: 20071130
  Receipt Date: 20070417
  Transmission Date: 20080405
  Serious: Yes (Other)
  Sender: FDA-Public Use
  Company Number: WAES 0704USA03732

PATIENT
  Age: 74 Year
  Sex: Female
  Weight: 44.9061 kg

DRUGS (5)
  1. FOSAMAX [Suspect]
     Indication: OSTEOPOROSIS
     Dosage: 70 MG/WKY/PO
     Route: 048
     Dates: start: 19970101, end: 20070301
  2. KEPPRA [Concomitant]
  3. LOTEMAX [Concomitant]
  4. FLAXSEED [Concomitant]
  5. LEVOTHYROXINE SODIUM [Concomitant]

REACTIONS (2)
  - OESOPHAGEAL CARCINOMA [None]
  - OSTEONECROSIS [None]
